FAERS Safety Report 10440636 (Version 1)
Quarter: 2014Q3

REPORT INFORMATION
  Report Type: Spontaneous
  Country: US (occurrence: None)
  Receive Date: 20140905
  Receipt Date: 20140905
  Transmission Date: 20150326
  Serious: Yes (Other)
  Sender: FDA-Public Use
  Company Number: None

PATIENT
  Age: 67 Year
  Sex: Male
  Weight: 128.37 kg

DRUGS (1)
  1. FOSINOPRIL SANDOZ [Suspect]
     Active Substance: FOSINOPRIL
     Indication: BLOOD PRESSURE
     Route: 048
     Dates: start: 20140809, end: 20140809

REACTIONS (3)
  - Drug hypersensitivity [None]
  - Product substitution issue [None]
  - Product quality issue [None]

NARRATIVE: CASE EVENT DATE: 20140809
